FAERS Safety Report 9632342 (Version 1)
Quarter: 2013Q4

REPORT INFORMATION
  Report Type: Spontaneous
  Country: US (occurrence: GB)
  Receive Date: 20131018
  Receipt Date: 20131018
  Transmission Date: 20140711
  Serious: Yes (Death, Other)
  Sender: FDA-Public Use
  Company Number: GB-PFIZER INC-2013297278

PATIENT
  Age: 65 Year
  Sex: Male

DRUGS (5)
  1. FLUOROURACIL [Suspect]
     Indication: RECTAL CANCER METASTATIC
     Dosage: 1 G DAILY FOR 6 CONSECUTIVE DAYS
     Route: 041
  2. FLUOROURACIL [Suspect]
     Dosage: 600 MG, CYCLIC
     Route: 042
  3. METHYLDOPA [Concomitant]
     Indication: HYPERTENSION
     Dosage: 500 MG, 4X/DAY
  4. DIGOXIN [Concomitant]
     Indication: HYPERTENSION
     Dosage: 0.25 MG, IN THE MORNING
  5. CYCLOPENTHIAZIDE [Concomitant]
     Indication: HYPERTENSION
     Dosage: K2 IN THE MORNING

REACTIONS (2)
  - Coronary artery disease [Fatal]
  - Infarction [Unknown]
